FAERS Safety Report 8014949-4 (Version None)
Quarter: 2011Q4

REPORT INFORMATION
  Report Type: 
  Country: None (occurrence: None)
  Receive Date: 20111229
  Receipt Date: 20111222
  Transmission Date: 20120403
  Serious: Yes (Hospitalization, Other)
  Sender: FDA-Public Use
  Company Number: US-BAYER-2011-124161

PATIENT
  Age: 79 Year
  Sex: Male
  Weight: 69.4 kg

DRUGS (6)
  1. ACETYLSALICYLIC ACID SRT [Suspect]
  2. RIVAROXABAN [Suspect]
     Indication: KNEE ARTHROPLASTY
     Dosage: DOSAGE FORM: TABLET
     Route: 048
     Dates: start: 20111012, end: 20111015
  3. COZAAR [Concomitant]
  4. PROBENECID [Concomitant]
  5. COLCHICINE [Concomitant]
  6. LIPITOR [Concomitant]

REACTIONS (1)
  - HAEMORRHAGIC ANAEMIA [None]
